FAERS Safety Report 8134580-X (Version None)
Quarter: 2012Q1

REPORT INFORMATION
  Report Type: 
  Country: None (occurrence: None)
  Receive Date: 20120214
  Receipt Date: 20120113
  Transmission Date: 20120608
  Serious: Yes (Other)
  Sender: FDA-Public Use
  Company Number: IT-SANOFI-AVENTIS-2012SA009060

PATIENT

DRUGS (2)
  1. ELOXATIN [Suspect]
     Dosage: DAILY DOSE: 170 (UNITS NOT REPORTED)
     Route: 042
     Dates: start: 20080522, end: 20080522
  2. FLUOROURACIL [Concomitant]
     Dosage: DAILY DOSE: 2400 (UNITS NOT REPORTED).
     Route: 042
     Dates: start: 20080522, end: 20080524

REACTIONS (1)
  - ANGINA UNSTABLE [None]
